FAERS Safety Report 23039811 (Version 2)
Quarter: 2024Q1

REPORT INFORMATION
  Report Type: Spontaneous
  Country: US (occurrence: US)
  Receive Date: 20231006
  Receipt Date: 20240114
  Transmission Date: 20240409
  Serious: Yes (Hospitalization, Disabling)
  Sender: FDA-Public Use
  Company Number: US-JNJFOC-20230969481

PATIENT
  Age: 71 Year
  Sex: Female

DRUGS (1)
  1. TECVAYLI [Suspect]
     Active Substance: TECLISTAMAB-CQYV
     Indication: Plasma cell myeloma refractory
     Dosage: 5 DOSES OF TECVAYLI
     Route: 058
     Dates: end: 20230523

REACTIONS (2)
  - Colitis [Not Recovered/Not Resolved]
  - Pyrexia [Recovered/Resolved]
